FAERS Safety Report 8581129-3 (Version None)
Quarter: 2012Q3

REPORT INFORMATION
  Report Type: 
  Country: None (occurrence: None)
  Receive Date: 20120727
  Receipt Date: 20120712
  Transmission Date: 20120928
  Serious: Yes (Hospitalization)
  Sender: FDA-Public Use
  Company Number: JPI-P-022683

PATIENT
  Age: 34 Year
  Sex: Female
  Weight: 63.5036 kg

DRUGS (6)
  1. OXYCONTIN [Concomitant]
  2. ENOXAPARIN SODIUM [Concomitant]
  3. XYREM [Suspect]
     Indication: NARCOLEPSY
     Dosage: 4.5 GM (2.25 GM,2 IN 1 D),ORAL,  (TITRATION),ORAL, 9 GM (4.5 GM,2 IN 1 D),ORAL
     Route: 048
     Dates: start: 20100611, end: 20120703
  4. XYREM [Suspect]
     Indication: NARCOLEPSY
     Dosage: 4.5 GM (2.25 GM,2 IN 1 D),ORAL,  (TITRATION),ORAL, 9 GM (4.5 GM,2 IN 1 D),ORAL
     Route: 048
     Dates: start: 20100423
  5. XYREM [Suspect]
     Indication: NARCOLEPSY
     Dosage: 4.5 GM (2.25 GM,2 IN 1 D),ORAL,  (TITRATION),ORAL, 9 GM (4.5 GM,2 IN 1 D),ORAL
     Route: 048
     Dates: start: 20120712
  6. AMPHETAMINE, DEXTROAMPHETAMINE MIXED SALTS [Concomitant]

REACTIONS (7)
  - TRAUMATIC LIVER INJURY [None]
  - CONTUSION [None]
  - LOWER LIMB FRACTURE [None]
  - SPINAL FRACTURE [None]
  - UPPER LIMB FRACTURE [None]
  - PATELLA FRACTURE [None]
  - ROAD TRAFFIC ACCIDENT [None]
